FAERS Safety Report 8189670 (Version 2)
Quarter: 2012Q4

REPORT INFORMATION
  Report Type: 
  Country: US (occurrence: US)
  Receive Date: 20111019
  Receipt Date: 20121121
  Transmission Date: 20130627
  Serious: No
  Sender: FDA-Public Use
  Company Number: US-BRISTOL-MYERS SQUIBB COMPANY-16041725

PATIENT
  Sex: Female

DRUGS (1)
  1. AVALIDE [Suspect]
     Dosage: 1 df= 300/12.5mg, tried to cut in to two.

REACTIONS (4)
  - Blood pressure fluctuation [Unknown]
  - Medication error [Unknown]
  - Tablet physical issue [None]
  - Product quality issue [None]
